FAERS Safety Report 6818956-6 (Version None)
Quarter: 2010Q3

REPORT INFORMATION
  Report Type: 
  Country: None (occurrence: None)
  Receive Date: 20100707
  Receipt Date: 20100330
  Transmission Date: 20110219
  Serious: Yes (Other)
  Sender: FDA-Public Use
  Company Number: US-ASTRAZENECA-2006UW08958

PATIENT
  Age: 459 Month
  Sex: Female
  Weight: 104.3 kg

DRUGS (13)
  1. SEROQUEL [Suspect]
     Indication: POST-TRAUMATIC STRESS DISORDER
     Dosage: 100-300 MG
     Route: 048
     Dates: start: 20020215, end: 20060421
  2. SEROQUEL [Suspect]
     Route: 048
     Dates: start: 20020401, end: 20060101
  3. SEROQUEL [Suspect]
     Dosage: 25 MG TO 375 MG.
     Route: 048
     Dates: start: 20040517
  4. RISPERDAL [Suspect]
     Indication: POST-TRAUMATIC STRESS DISORDER
     Dates: start: 20010401, end: 20021101
  5. ZYPREXA [Suspect]
     Indication: POST-TRAUMATIC STRESS DISORDER
     Dates: start: 20000201, end: 20001101
  6. LISINOPRIL [Concomitant]
     Route: 048
     Dates: start: 20030217
  7. LORAZEPAM [Concomitant]
     Route: 048
     Dates: start: 20020216
  8. OXYCODONE HCL [Concomitant]
  9. CLONAZEPAM [Concomitant]
     Dosage: 2 MG TWO TABLETS A DAY P.R.N.
     Dates: start: 20040101
  10. PROTONIX [Concomitant]
     Dates: start: 20040101
  11. TOPROL-XL [Concomitant]
     Dates: start: 20040101
  12. LIPITOR [Concomitant]
     Dates: start: 20040101
  13. BEXTRA [Concomitant]
     Dates: start: 20040101

REACTIONS (3)
  - DIABETES MELLITUS [None]
  - NEUROPATHY PERIPHERAL [None]
  - TYPE 2 DIABETES MELLITUS [None]
